FAERS Safety Report 20940694 (Version 5)
Quarter: 2022Q3

REPORT INFORMATION
  Report Type: Report from Study
  Country: CN (occurrence: CN)
  Receive Date: 20220609
  Receipt Date: 20220929
  Transmission Date: 20221027
  Serious: Yes (Life-Threatening, Hospitalization)
  Sender: FDA-Public Use
  Company Number: CN-GILEAD-2022-0584834

PATIENT
  Age: 77 Year
  Sex: Female
  Weight: 61 kg

DRUGS (28)
  1. SACITUZUMAB GOVITECAN [Suspect]
     Active Substance: SACITUZUMAB GOVITECAN
     Indication: Transitional cell cancer of the renal pelvis and ureter
     Dosage: 610 MG, Q3WK D1 AND D8
     Route: 041
     Dates: start: 20220413
  2. SACITUZUMAB GOVITECAN [Suspect]
     Active Substance: SACITUZUMAB GOVITECAN
     Dosage: 610 MG, Q3WK D1 AND D8
     Route: 041
     Dates: start: 20220527
  3. DICLOFENAC [Concomitant]
     Active Substance: DICLOFENAC
     Indication: Pain
     Dosage: UNK
     Dates: start: 20220403
  4. SODIUM ACETATE [Concomitant]
     Active Substance: SODIUM ACETATE
     Indication: Electrolyte imbalance
     Dosage: UNK
     Dates: start: 20220513, end: 20220513
  5. SODIUM ACETATE [Concomitant]
     Active Substance: SODIUM ACETATE
     Dosage: UNK
     Dates: start: 20220514, end: 20220514
  6. SODIUM ACETATE [Concomitant]
     Active Substance: SODIUM ACETATE
     Dosage: UNK
     Dates: start: 20220527, end: 20220527
  7. SODIUM CHLORIDE [Concomitant]
     Active Substance: SODIUM CHLORIDE
     Dosage: UNK
     Dates: start: 20220513, end: 20220513
  8. SODIUM CHLORIDE [Concomitant]
     Active Substance: SODIUM CHLORIDE
     Dosage: UNK
     Dates: start: 20220527, end: 20220527
  9. ESOMEPRAZOLE [Concomitant]
     Active Substance: ESOMEPRAZOLE
     Dosage: UNK
     Dates: start: 20220513, end: 20220513
  10. ESOMEPRAZOLE [Concomitant]
     Active Substance: ESOMEPRAZOLE
     Dosage: UNK
     Dates: start: 20220527, end: 20220527
  11. METOCLOPRAMIDE HYDROCHLORIDE [Concomitant]
     Active Substance: METOCLOPRAMIDE HYDROCHLORIDE
     Indication: Illness
     Dosage: UNK
     Dates: start: 20220514, end: 20220514
  12. ESTAZOLAM [Concomitant]
     Active Substance: ESTAZOLAM
     Indication: Prophylaxis
     Dosage: UNK
     Dates: start: 20220513, end: 20220513
  13. POLYSACCHARIDE IRON [Concomitant]
     Indication: Anaemia
     Dosage: UNK
     Dates: start: 20220527
  14. POLYSACCHARIDE IRON [Concomitant]
     Dosage: 0.15 G, QD
     Dates: start: 20220607
  15. EPOPEN [ERYTHROPOIETIN HUMAN] [Concomitant]
     Indication: Anaemia
     Dosage: UNK
     Dates: start: 20220527
  16. EPOPEN [ERYTHROPOIETIN HUMAN] [Concomitant]
     Dosage: 10000 IU 3 TIMES A WEEK
     Route: 058
     Dates: start: 20220607
  17. MAGNESIUM ALUMINUM SILICATE [Concomitant]
     Active Substance: MAGNESIUM ALUMINUM SILICATE
     Dosage: UNK
     Dates: start: 20220607, end: 20220617
  18. INSULIN NOS [Concomitant]
     Active Substance: INSULIN NOS
     Indication: Hypoglycaemia
     Dosage: UNK
     Dates: start: 20220609, end: 20220614
  19. CALCIUM GLUCONATE [Concomitant]
     Active Substance: CALCIUM GLUCONATE
     Dosage: UNK
     Dates: start: 20220609, end: 20220614
  20. BUDESONIDE [Concomitant]
     Active Substance: BUDESONIDE
     Dosage: UNK
     Dates: start: 20220613, end: 20220616
  21. HUMAN SERUM ALBUMIN I-131 [Concomitant]
     Active Substance: HUMAN SERUM ALBUMIN I-131
     Indication: Hypoproteinaemia
     Dosage: UNK
     Dates: start: 20220614, end: 20220617
  22. PREDNISONE ACETATE [Concomitant]
     Active Substance: PREDNISONE ACETATE
     Dosage: UNK
     Dates: start: 20220614, end: 20220617
  23. DICLOFENAC SODIUM [Concomitant]
     Active Substance: DICLOFENAC SODIUM
     Indication: Pain
     Dosage: UNK
     Dates: start: 20220608
  24. TRAMADOL HYDROCHLORIDE [Concomitant]
     Active Substance: TRAMADOL HYDROCHLORIDE
     Indication: Pain
  25. COMPOUND SODIUM CHLORIDE [CALCIUM CHLORIDE;POTASSIUM CHLORIDE;SODIUM C [Concomitant]
     Dosage: UNK
     Dates: start: 20220609
  26. HUMAN RED BLOOD CELL [Concomitant]
     Active Substance: HUMAN RED BLOOD CELL
     Dosage: 1.5 UNITS
     Dates: start: 20220609
  27. DI YU SHENG BAI [Concomitant]
  28. VITAMIN D2 [Concomitant]
     Active Substance: ERGOCALCIFEROL
     Dosage: UNK
     Dates: start: 20220617

REACTIONS (1)
  - Myelosuppression [Not Recovered/Not Resolved]

NARRATIVE: CASE EVENT DATE: 20220606
